FAERS Safety Report 7826137-2 (Version None)
Quarter: 2011Q4

REPORT INFORMATION
  Report Type: 
  Country: None (occurrence: None)
  Receive Date: 20111019
  Receipt Date: 20111013
  Transmission Date: 20120403
  Serious: Yes (Life-Threatening, Hospitalization)
  Sender: FDA-Public Use
  Company Number: US-CELGENEUS-163-C5013-11101703

PATIENT
  Sex: Male
  Weight: 77.5 kg

DRUGS (16)
  1. AMLODIPINE [Concomitant]
     Indication: HYPERTENSION
     Dosage: 10 MILLIGRAM
     Route: 048
     Dates: start: 20110909
  2. ZOMETA [Concomitant]
     Dosage: 4 MILLIGRAM
     Route: 041
     Dates: start: 20110201
  3. LENALIDOMIDE [Suspect]
     Dosage: 25 MILLIGRAM
     Route: 048
     Dates: start: 20110901, end: 20110914
  4. PREDNISONE [Suspect]
     Dosage: 5 MILLIGRAM
     Route: 048
     Dates: start: 20110901
  5. OXYCODONE HCL [Concomitant]
     Indication: BACK PAIN
     Dosage: 5-10MG
     Route: 048
     Dates: start: 20110901
  6. PREDNISONE [Suspect]
     Indication: PROSTATE CANCER
     Dosage: 5 MILLIGRAM
     Route: 048
     Dates: start: 20110721, end: 20110810
  7. AUGMENTIN '125' [Concomitant]
     Indication: LARYNGITIS
     Route: 065
     Dates: start: 20110101
  8. ATENOLOL [Concomitant]
     Indication: HYPERTENSION
     Dosage: 50 MILLIGRAM
     Route: 048
     Dates: start: 20110713
  9. ASPIRIN [Concomitant]
     Dosage: 81 MILLIGRAM
     Route: 065
  10. LISINOPRIL [Concomitant]
     Dosage: 5 MILLIGRAM
     Route: 065
  11. LENALIDOMIDE [Suspect]
     Indication: PROSTATE CANCER
     Dosage: 25 MILLIGRAM
     Route: 048
     Dates: start: 20110721, end: 20110803
  12. DOCETAXEL [Suspect]
     Dosage: 140 MILLIGRAM
     Route: 041
     Dates: start: 20110901, end: 20110901
  13. CALCIUM 600 + VITAMIN D [Concomitant]
     Indication: VITAMIN SUPPLEMENTATION
     Dosage: 1 TABLET
     Route: 048
     Dates: start: 20101221
  14. LENALIDOMIDE [Suspect]
     Dosage: 25 MILLIGRAM
     Route: 048
     Dates: start: 20111005
  15. DOCETAXEL [Suspect]
     Indication: PROSTATE CANCER
     Dosage: 140 MILLIGRAM
     Route: 041
     Dates: start: 20110721, end: 20110721
  16. DOCETAXEL [Suspect]
     Dosage: 140 MILLIGRAM
     Route: 041
     Dates: start: 20111005

REACTIONS (1)
  - SEPSIS [None]
